FAERS Safety Report 23989715 (Version 2)
Quarter: 2024Q3

REPORT INFORMATION
  Report Type: Report from Study
  Country: US (occurrence: US)
  Receive Date: 20240619
  Receipt Date: 20240705
  Transmission Date: 20241016
  Serious: No
  Sender: AGIOS PHARMACEUTICALS
  Company Number: US-AGIOS-2406US03795

PATIENT

DRUGS (1)
  1. MITAPIVAT [Suspect]
     Active Substance: MITAPIVAT
     Indication: Pyruvate kinase deficiency anaemia
     Dosage: 50 MILLIGRAM, BID
     Route: 048
     Dates: start: 20230208

REACTIONS (3)
  - Hypoaesthesia [Unknown]
  - Product dose omission issue [Unknown]
  - Haemoglobin decreased [Unknown]
